FAERS Safety Report 13226157 (Version 1)
Quarter: 2017Q1

REPORT INFORMATION
  Report Type: Spontaneous
  Country: US (occurrence: US)
  Receive Date: 20170212
  Receipt Date: 20170212
  Transmission Date: 20170428
  Serious: Yes (Other)
  Sender: FDA-Public Use
  Company Number: None

PATIENT
  Age: 30 Year
  Sex: Female
  Weight: 82.35 kg

DRUGS (1)
  1. EPCLUSA [Suspect]
     Active Substance: SOFOSBUVIR\VELPATASVIR
     Indication: HEPATITIS C
     Dosage: ?          QUANTITY:83 TABLET(S);?
     Route: 048
     Dates: start: 20170212, end: 20170212

REACTIONS (3)
  - Fall [None]
  - Tinnitus [None]
  - Vertigo [None]

NARRATIVE: CASE EVENT DATE: 20170212
